FAERS Safety Report 16285687 (Version 1)
Quarter: 2019Q2

REPORT INFORMATION
  Report Type: Spontaneous
  Country: US (occurrence: US)
  Receive Date: 20190508
  Receipt Date: 20190508
  Transmission Date: 20190711
  Serious: Yes (Hospitalization, Other)
  Sender: FDA-Public Use
  Company Number: US-ELI_LILLY_AND_COMPANY-US201904015409

PATIENT
  Age: 73 Year
  Sex: Female

DRUGS (1)
  1. GEMCITABINE HYDROCHLORIDE. [Suspect]
     Active Substance: GEMCITABINE HYDROCHLORIDE
     Indication: ADENOCARCINOMA PANCREAS
     Dosage: 1000 MG/M2, CYCLICAL
     Route: 065

REACTIONS (4)
  - Cardiotoxicity [Recovered/Resolved]
  - Cardiomyopathy [Recovered/Resolved]
  - Left ventricular failure [Recovered/Resolved]
  - Cardiac failure congestive [Recovered/Resolved]
